FAERS Safety Report 5157061-4 (Version None)
Quarter: 2006Q4

REPORT INFORMATION
  Report Type: 
  Country: None (occurrence: None)
  Receive Date: 20061127
  Receipt Date: 20051122
  Transmission Date: 20070319
  Serious: Yes (Hospitalization, Other)
  Sender: FDA-Public Use
  Company Number: US-ELI_LILLY_AND_COMPANY-US200511002396

PATIENT
  Age: 31 Year
  Sex: Female
  Weight: 99.773 kg

DRUGS (3)
  1. ZYPREXA [Suspect]
     Indication: DEPRESSION
     Dosage: 5 MG, UNK
     Dates: start: 20021115
  2. ZYPREXA [Suspect]
     Dosage: 10 MG, UNK
     Dates: end: 20040706
  3. SEROQUEL [Concomitant]
     Dates: start: 20040615

REACTIONS (4)
  - CHOLECYSTECTOMY [None]
  - PANCREATITIS [None]
  - WEIGHT DECREASED [None]
  - WEIGHT INCREASED [None]
